FAERS Safety Report 22063587 (Version 1)
Quarter: 2023Q1

REPORT INFORMATION
  Report Type: Spontaneous
  Country: CN (occurrence: CN)
  Receive Date: 20230306
  Receipt Date: 20230306
  Transmission Date: 20230417
  Serious: Yes (Other)
  Sender: FDA-Public Use
  Company Number: None

PATIENT
  Age: 54 Year
  Sex: Female
  Weight: 68.5 kg

DRUGS (6)
  1. CYCLOPHOSPHAMIDE [Suspect]
     Active Substance: CYCLOPHOSPHAMIDE
     Indication: Breast cancer female
     Dosage: 1 G, QD, DILUTED WITH 0.9% SODIUM CHLORIDE 250 ML, SECOND NEOADJUVANT CHEMOTHERAPY
     Route: 041
     Dates: start: 20230128, end: 20230128
  2. CYCLOPHOSPHAMIDE [Suspect]
     Active Substance: CYCLOPHOSPHAMIDE
     Indication: Chemotherapy
  3. SODIUM CHLORIDE [Suspect]
     Active Substance: SODIUM CHLORIDE
     Indication: Medication dilution
     Dosage: 0.9% 250 ML, QD, USED TO DILUTE CYCLOPHOSPHAMIDE 1 G, SECOND NEOADJUVANT CHEMOTHERAPY
     Route: 041
     Dates: start: 20230128, end: 20230128
  4. DEXTROSE MONOHYDRATE [Suspect]
     Active Substance: DEXTROSE MONOHYDRATE
     Indication: Medication dilution
     Dosage: 5% 100 ML, QD, USED TO DILUTE EPIRUBICIN HYDROCHLORIDE 155 MG, SECOND NEOADJUVANT CHEMOTHERAPY
     Route: 041
     Dates: start: 20230128, end: 20230128
  5. EPIRUBICIN HYDROCHLORIDE [Suspect]
     Active Substance: EPIRUBICIN HYDROCHLORIDE
     Indication: Breast cancer female
     Dosage: 155 MG, QD, DILUTED WITH 5% GLUCOSE 100 ML, SECOND NEOADJUVANT CHEMOTHERAPY
     Route: 041
     Dates: start: 20230128, end: 20230128
  6. EPIRUBICIN HYDROCHLORIDE [Suspect]
     Active Substance: EPIRUBICIN HYDROCHLORIDE
     Indication: Chemotherapy

REACTIONS (1)
  - White blood cell count decreased [Recovering/Resolving]

NARRATIVE: CASE EVENT DATE: 20230131
